FAERS Safety Report 8364288-7 (Version None)
Quarter: 2012Q1

REPORT INFORMATION
  Report Type: 
  Country: None (occurrence: None)
  Receive Date: 20120323
  Receipt Date: 20111222
  Transmission Date: 20120608
  Serious: Yes (Other)
  Sender: FDA-Public Use
  Company Number: 163-21880-11111559

PATIENT
  Age: 72 Year
  Sex: Male

DRUGS (2)
  1. REVLIMID [Suspect]
     Indication: MYELODYSPLASTIC SYNDROME
     Dosage: 5 MG, DAILY FOR 21 DAYS ON/7 DAYS OFF, PO, 5 MG, DAILY FOR 21 DAYS ON/7 DAYS OFF, PO
     Route: 048
     Dates: start: 20110221
  2. REVLIMID [Suspect]
     Indication: MYELODYSPLASTIC SYNDROME
     Dosage: 5 MG, DAILY FOR 21 DAYS ON/7 DAYS OFF, PO, 5 MG, DAILY FOR 21 DAYS ON/7 DAYS OFF, PO
     Route: 048
     Dates: start: 20101224

REACTIONS (1)
  - WHITE BLOOD CELL COUNT DECREASED [None]
